FAERS Safety Report 24869165 (Version 2)
Quarter: 2025Q1

REPORT INFORMATION
  Report Type: Spontaneous
  Country: US (occurrence: US)
  Receive Date: 20250121
  Receipt Date: 20250303
  Transmission Date: 20250409
  Serious: Yes (Other)
  Sender: PFIZER
  Company Number: US-PFIZER INC-PV202300187575

PATIENT
  Age: 69 Year
  Sex: Female
  Weight: 66.3 kg

DRUGS (9)
  1. IBRANCE [Suspect]
     Active Substance: PALBOCICLIB
     Indication: Metastasis
     Route: 048
  2. IBRANCE [Suspect]
     Active Substance: PALBOCICLIB
     Indication: Breast cancer metastatic
  3. IBRANCE [Suspect]
     Active Substance: PALBOCICLIB
     Indication: Metastases to chest wall
     Route: 048
     Dates: start: 20230119
  4. IBRANCE [Suspect]
     Active Substance: PALBOCICLIB
     Route: 048
     Dates: start: 20240905
  5. LETROZOLE [Concomitant]
     Active Substance: LETROZOLE
     Dates: start: 202304
  6. XGEVA [Concomitant]
     Active Substance: DENOSUMAB
     Indication: Metastases to bone
     Dosage: UNK, EVERY 3 MONTHS (84 DAYS)
     Dates: start: 20230216
  7. CALCIUM CARBONATE\CHOLECALCIFEROL [Concomitant]
     Active Substance: CALCIUM CARBONATE\CHOLECALCIFEROL
     Dosage: 600 MG, 2X/DAY
     Route: 048
     Dates: start: 20230216, end: 20250208
  8. CALCIUM [Concomitant]
     Active Substance: CALCIUM
     Dosage: TAKE 1 TABLET BY MOUTH 2 (TWO) TIMES A DAY
     Route: 048
     Dates: start: 20230216, end: 20250208
  9. ULTRAM [Concomitant]
     Active Substance: TRAMADOL HYDROCHLORIDE
     Indication: Pain
     Route: 048
     Dates: start: 20230120

REACTIONS (10)
  - Neutropenia [Recovered/Resolved]
  - Off label use [Unknown]
  - Product use issue [Unknown]
  - Respiratory tract congestion [Recovered/Resolved]
  - Pain [Unknown]
  - Heart rate abnormal [Unknown]
  - Weight decreased [Unknown]
  - Malaise [Unknown]
  - Decreased appetite [Unknown]
  - Fatigue [Unknown]

NARRATIVE: CASE EVENT DATE: 20240101
